FAERS Safety Report 4773047-3 (Version None)
Quarter: 2005Q3

REPORT INFORMATION
  Report Type: 
  Country: None (occurrence: None)
  Receive Date: 20050916
  Receipt Date: 20050905
  Transmission Date: 20060218
  Serious: Yes (Other)
  Sender: FDA-Public Use
  Company Number: B0392760A

PATIENT
  Age: 27 Year
  Sex: Male

DRUGS (6)
  1. EPIVIR [Suspect]
     Indication: HIV INFECTION
     Dates: start: 20001101
  2. ZIAGEN [Suspect]
     Indication: HIV INFECTION
     Dates: start: 20001101
  3. EFAVIRENZ (FORMULATIN UNKNOWN) (EFAVIRENZ) [Suspect]
     Indication: HIV INFECTION
     Dates: start: 20001101
  4. AMPHOTERICIN B [Concomitant]
  5. FLUCYTOSINE [Concomitant]
  6. FLUCONAZOLE [Concomitant]

REACTIONS (7)
  - CRYPTOCOCCOSIS [None]
  - CSF PRESSURE INCREASED [None]
  - CSF WHITE BLOOD CELL COUNT INCREASED [None]
  - HEADACHE [None]
  - IMMUNE RECONSTITUTION SYNDROME [None]
  - NAUSEA [None]
  - VOMITING [None]
